FAERS Safety Report 16759359 (Version 1)
Quarter: 2019Q3

REPORT INFORMATION
  Report Type: Spontaneous
  Country: CA (occurrence: CA)
  Receive Date: 20190830
  Receipt Date: 20190830
  Transmission Date: 20191005
  Serious: Yes (Other)
  Sender: FDA-Public Use
  Company Number: CA-MYLANLABS-2019M1081261

PATIENT
  Age: 47 Year
  Sex: Male

DRUGS (22)
  1. BORTEZOMIB. [Suspect]
     Active Substance: BORTEZOMIB
     Indication: GLOMERULONEPHRITIS MEMBRANOPROLIFERATIVE
  2. CYCLOPHOSPHAMIDE. [Suspect]
     Active Substance: CYCLOPHOSPHAMIDE
     Indication: GLOMERULONEPHRITIS MEMBRANOPROLIFERATIVE
  3. PREDNISONE. [Concomitant]
     Active Substance: PREDNISONE
     Indication: CRYOGLOBULINAEMIA
     Dosage: WITH TAPER
     Route: 048
     Dates: start: 2015
  4. DEXAMETHASONE. [Suspect]
     Active Substance: DEXAMETHASONE
     Indication: CRYOGLOBULINAEMIA
     Dosage: 2 CYCLES
     Route: 065
  5. BENDAMUSTINE [Suspect]
     Active Substance: BENDAMUSTINE
     Indication: GLOMERULONEPHRITIS MEMBRANOPROLIFERATIVE
  6. RITUXIMAB. [Concomitant]
     Active Substance: RITUXIMAB
     Indication: CRYOGLOBULINAEMIA
     Dosage: 4 DOSES
     Route: 042
     Dates: start: 2015
  7. METHYLPREDNISOLONE. [Concomitant]
     Active Substance: METHYLPREDNISOLONE
     Indication: GLOMERULONEPHRITIS MEMBRANOPROLIFERATIVE
  8. LEDIPASVIR [Concomitant]
     Active Substance: LEDIPASVIR
     Indication: GLOMERULONEPHRITIS MEMBRANOPROLIFERATIVE
  9. BORTEZOMIB. [Suspect]
     Active Substance: BORTEZOMIB
     Indication: CRYOGLOBULINAEMIA
     Dosage: 2 CYCLES
     Route: 065
  10. PREDNISONE. [Concomitant]
     Active Substance: PREDNISONE
     Indication: GLOMERULONEPHRITIS MEMBRANOPROLIFERATIVE
  11. SOFOSBUVIR [Concomitant]
     Active Substance: SOFOSBUVIR
     Indication: HEPATITIS C
     Dosage: UNK
     Route: 065
     Dates: start: 2015
  12. SOFOSBUVIR [Concomitant]
     Active Substance: SOFOSBUVIR
     Indication: GLOMERULONEPHRITIS MEMBRANOPROLIFERATIVE
  13. AZATHIOPRINE. [Concomitant]
     Active Substance: AZATHIOPRINE
     Indication: CRYOGLOBULINAEMIA
     Dosage: INITIAL DOSAGE NOT STATED AND PROGRESSIVELY INCREASED
     Route: 065
     Dates: start: 201704
  14. FUROSEMIDE. [Suspect]
     Active Substance: FUROSEMIDE
     Indication: OEDEMA PERIPHERAL
     Dosage: INITIAL DOSAGE NOT STATED BUT WAS TAPERED TO 80MG TWICE A DAY
     Route: 048
  15. CYCLOPHOSPHAMIDE. [Suspect]
     Active Substance: CYCLOPHOSPHAMIDE
     Indication: CRYOGLOBULINAEMIA
     Dosage: 2 CYCLES
     Route: 042
  16. FUROSEMIDE. [Suspect]
     Active Substance: FUROSEMIDE
     Indication: GLOMERULONEPHRITIS MEMBRANOPROLIFERATIVE
  17. AZATHIOPRINE. [Concomitant]
     Active Substance: AZATHIOPRINE
     Indication: GLOMERULONEPHRITIS MEMBRANOPROLIFERATIVE
  18. BENDAMUSTINE [Suspect]
     Active Substance: BENDAMUSTINE
     Indication: CRYOGLOBULINAEMIA
     Dosage: UNK
     Route: 065
  19. RITUXIMAB. [Concomitant]
     Active Substance: RITUXIMAB
     Indication: GLOMERULONEPHRITIS MEMBRANOPROLIFERATIVE
     Dosage: REPEATED 2 WEEKS LATER
     Route: 042
     Dates: start: 2015
  20. RITUXIMAB. [Concomitant]
     Active Substance: RITUXIMAB
     Dosage: 4 DOSES WERE GIVEN IN JULY 2016 AND AUGUST 2016
     Route: 042
  21. METHYLPREDNISOLONE. [Concomitant]
     Active Substance: METHYLPREDNISOLONE
     Indication: CRYOGLOBULINAEMIA
     Dosage: UNK
     Route: 042
     Dates: start: 2015
  22. LEDIPASVIR [Concomitant]
     Active Substance: LEDIPASVIR
     Indication: HEPATITIS C
     Dosage: UNK
     Route: 065
     Dates: start: 2015

REACTIONS (1)
  - Drug ineffective [Unknown]
